FAERS Safety Report 5908728-9 (Version None)
Quarter: 2008Q4

REPORT INFORMATION
  Report Type: 
  Country: None (occurrence: None)
  Receive Date: 20081006
  Receipt Date: 20080925
  Transmission Date: 20090506
  Serious: Yes (Hospitalization)
  Sender: FDA-Public Use
  Company Number: B0538751A

PATIENT
  Age: 60 Year
  Sex: Male

DRUGS (8)
  1. ZOPHREN [Suspect]
     Indication: DRUG USE FOR UNKNOWN INDICATION
     Dosage: 8MG PER DAY
     Route: 042
     Dates: start: 20080627, end: 20080627
  2. ENDOXAN [Suspect]
     Dosage: 1.5G PER DAY
     Route: 042
     Dates: start: 20080627, end: 20080627
  3. DOXORUBICIN HCL [Suspect]
     Dosage: 100MG PER DAY
     Route: 042
     Dates: start: 20080627, end: 20080627
  4. UROMITEXAN IV [Suspect]
     Dosage: 500MG PER DAY
     Route: 042
     Dates: start: 20080627, end: 20080627
  5. UROMITEXAN [Suspect]
     Dosage: 1000MG TWICE PER DAY
     Route: 048
     Dates: start: 20080627, end: 20080627
  6. VINCRISTINE [Suspect]
     Dosage: 2MG PER DAY
     Route: 042
     Dates: start: 20080627, end: 20080627
  7. CORTANCYL [Suspect]
     Indication: DRUG USE FOR UNKNOWN INDICATION
     Dosage: 80MG PER DAY
     Route: 048
     Dates: start: 20080627, end: 20080701
  8. RADIOTHERAPY [Concomitant]
     Dates: start: 20080806

REACTIONS (5)
  - CARDIAC TAMPONADE [None]
  - HEPATIC FUNCTION ABNORMAL [None]
  - LEFT VENTRICULAR DYSFUNCTION [None]
  - PERICARDIAL EFFUSION [None]
  - RENAL IMPAIRMENT [None]
